FAERS Safety Report 14884145 (Version 2)
Quarter: 2018Q2

REPORT INFORMATION
  Report Type: Spontaneous
  Country: CN (occurrence: CN)
  Receive Date: 20180511
  Receipt Date: 20180522
  Transmission Date: 20180711
  Serious: Yes (Other)
  Sender: FDA-Public Use
  Company Number: CN-ASTRAZENECA-2018SE63032

PATIENT
  Age: 60 Year
  Sex: Female

DRUGS (1)
  1. GEFITINIB. [Suspect]
     Active Substance: GEFITINIB
     Indication: LUNG NEOPLASM MALIGNANT
     Route: 048

REACTIONS (5)
  - Metastases to liver [Unknown]
  - Jaundice [Unknown]
  - Transaminases increased [Unknown]
  - Hepatic function abnormal [Unknown]
  - White blood cell count decreased [Recovered/Resolved]
